FAERS Safety Report 6145946-1 (Version None)
Quarter: 2009Q2

REPORT INFORMATION
  Report Type: 
  Country: None (occurrence: None)
  Receive Date: 20090407
  Receipt Date: 20090330
  Transmission Date: 20091009
  Serious: Yes (Hospitalization)
  Sender: FDA-Public Use
  Company Number: DE-ELI_LILLY_AND_COMPANY-DE200808001902

PATIENT
  Sex: Male
  Weight: 140 kg

DRUGS (13)
  1. SOMATROPIN [Suspect]
     Indication: PITUITARY TUMOUR BENIGN
     Dosage: 0.2 MG, DAILY (1/D)
     Route: 058
     Dates: start: 20010301, end: 20080201
  2. HYDROCORTISON [Concomitant]
     Indication: BLOOD CORTICOTROPHIN DECREASED
     Dosage: 30 MG, UNKNOWN
     Route: 065
  3. LEVOTHYROXINE SODIUM [Concomitant]
     Indication: THYROXINE DECREASED
     Dosage: 50 UG, UNKNOWN
     Route: 065
  4. NEBIDO                             /00103107/ [Concomitant]
     Indication: BLOOD GONADOTROPHIN DECREASED
     Dosage: 1000 MG, EVERY 10 WEEKS
     Route: 065
  5. ASPIRIN [Concomitant]
     Dosage: UNK, UNKNOWN
     Route: 065
  6. CLONIDINE [Concomitant]
     Indication: HYPERTENSION
     Dosage: 900 MG, UNKNOWN
     Route: 065
  7. METOPROLOL [Concomitant]
     Indication: HYPERTENSION
     Dosage: 20 MG, UNKNOWN
     Route: 065
  8. RAMIPRIL [Concomitant]
     Indication: HYPERTENSION
     Dosage: 5 MG, UNKNOWN
     Route: 065
  9. AMLODIPINE [Concomitant]
     Indication: HYPERTENSION
     Dosage: 5 MG, UNKNOWN
     Route: 065
  10. FUROSEMIDE [Concomitant]
     Indication: HYPERTENSION
     Dosage: 40 MG, UNK
  11. BEZAFIBRAT [Concomitant]
     Indication: LIPID METABOLISM DISORDER
     Dosage: 400 MG, UNK
  12. ACTOS [Concomitant]
     Indication: TYPE 2 DIABETES MELLITUS
     Dosage: 45 MG, UNK
  13. GLUCOPHAGE [Concomitant]
     Indication: TYPE 2 DIABETES MELLITUS
     Dosage: 2 G, UNK

REACTIONS (1)
  - LARYNGEAL CANCER [None]
